FAERS Safety Report 18993203 (Version 1)
Quarter: 2021Q1

REPORT INFORMATION
  Report Type: Spontaneous
  Country: DE (occurrence: DE)
  Receive Date: 20210310
  Receipt Date: 20210310
  Transmission Date: 20210420
  Serious: Yes (Death, Life-Threatening, Hospitalization)
  Sender: FDA-Public Use
  Company Number: DE-TEVA-2021-DE-1888128

PATIENT
  Age: 97 Year
  Sex: Female

DRUGS (5)
  1. TORASEMID [Suspect]
     Active Substance: TORSEMIDE
     Dosage: 50 MILLIGRAM DAILY; 1?0?0?0
     Route: 048
  2. PHENPROCOUMON [Suspect]
     Active Substance: PHENPROCOUMON
     Dosage: UNIT DOSE: 3 MG, ACCORDING TO PLAN
     Route: 048
  3. RAMIPRIL. [Concomitant]
     Active Substance: RAMIPRIL
     Dosage: .5 DOSAGE FORMS DAILY; 10 MG, 0.5?0?0?0
     Route: 048
  4. XIPAMID [Suspect]
     Active Substance: XIPAMIDE
     Dosage: UNIT DOSE: 10 MG, IF NECESSARY
     Route: 048
  5. LEVOTHYROXIN?NATRIUM [Concomitant]
     Active Substance: LEVOTHYROXINE SODIUM
     Dosage: .5 DOSAGE FORMS DAILY; 125 MCG, 0.5?0?0?0
     Route: 048

REACTIONS (8)
  - Abdominal pain [Unknown]
  - Sepsis [Unknown]
  - Gastrointestinal haemorrhage [Unknown]
  - General physical health deterioration [Unknown]
  - Electrolyte imbalance [Unknown]
  - Dehydration [Unknown]
  - Acute abdomen [Unknown]
  - Condition aggravated [Unknown]
